FAERS Safety Report 9767051 (Version 1)
Quarter: 2013Q4

REPORT INFORMATION
  Report Type: Spontaneous
  Country: US (occurrence: US)
  Receive Date: 20131217
  Receipt Date: 20131217
  Transmission Date: 20140711
  Serious: No
  Sender: FDA-Public Use
  Company Number: US-GLAXOSMITHKLINE-A1037764A

PATIENT
  Age: 46 Year
  Sex: Male
  Weight: 113.6 kg

DRUGS (11)
  1. VOTRIENT [Suspect]
     Indication: RENAL CANCER
     Dosage: 200MG UNKNOWN
     Route: 065
  2. AMLODIPINE [Concomitant]
  3. ZYRTEC [Concomitant]
  4. ZOMETA [Concomitant]
  5. MINOCYCLINE [Concomitant]
  6. POTASSIUM CHLORIDE [Concomitant]
  7. LEVOTHYROXINE [Concomitant]
  8. ALPRAZOLAM [Concomitant]
  9. CYCLOBENZAPRINE [Concomitant]
  10. NORCO [Concomitant]
  11. MS CONTIN [Concomitant]

REACTIONS (1)
  - Drug ineffective [Unknown]
